FAERS Safety Report 23669374 (Version 1)
Quarter: 2024Q1

REPORT INFORMATION
  Report Type: Spontaneous
  Country: CN (occurrence: CN)
  Receive Date: 20240325
  Receipt Date: 20240325
  Transmission Date: 20240410
  Serious: Yes (Life-Threatening, Other)
  Sender: FDA-Public Use
  Company Number: CN-BEIGENE-BGN-2024-004467

PATIENT

DRUGS (7)
  1. TISLELIZUMAB [Suspect]
     Active Substance: TISLELIZUMAB
     Indication: Oesophageal carcinoma
     Dosage: 200 MILLIGRAM
     Route: 041
     Dates: start: 20240308
  2. CISPLATIN [Suspect]
     Active Substance: CISPLATIN
     Indication: Oesophageal carcinoma
     Dosage: 50 MILLIGRAM
     Route: 041
     Dates: start: 20240306, end: 20240306
  3. CISPLATIN [Suspect]
     Active Substance: CISPLATIN
     Dosage: 40 MILLIGRAM
     Route: 041
     Dates: start: 20240307
  4. PACLITAXEL [Suspect]
     Active Substance: PACLITAXEL
     Indication: Oesophageal carcinoma
     Dosage: 480 MILLIGRAM
     Route: 041
     Dates: start: 20240306
  5. SODIUM CHLORIDE [Concomitant]
     Indication: Vehicle solution use
     Dosage: 100 MILLILITER
     Route: 041
     Dates: start: 20240306
  6. SODIUM CHLORIDE [Concomitant]
     Dosage: 500 MILLILITER
     Route: 041
     Dates: start: 20240306
  7. SODIUM CHLORIDE [Concomitant]
     Dosage: 100 MILLILITER
     Route: 041
     Dates: start: 20240308

REACTIONS (2)
  - Myelosuppression [Recovering/Resolving]
  - Myalgia [Recovering/Resolving]

NARRATIVE: CASE EVENT DATE: 20240308
